FAERS Safety Report 6144367-5 (Version None)
Quarter: 2009Q2

REPORT INFORMATION
  Report Type: 
  Country: None (occurrence: None)
  Receive Date: 20090406
  Receipt Date: 20090324
  Transmission Date: 20091009
  Serious: Yes (Disabling, Other)
  Sender: FDA-Public Use
  Company Number: US-ROCHE-237282

PATIENT
  Sex: Female
  Weight: 65.3 kg

DRUGS (2)
  1. ACCUTANE [Suspect]
     Indication: ACNE
     Dosage: PATIENT TOOK 100 CAPSULES ALTOGETHER.
     Route: 048
     Dates: start: 19830406, end: 19830101
  2. ACCUTANE [Suspect]
     Route: 048
     Dates: start: 19820101, end: 19830101

REACTIONS (52)
  - ABDOMINAL DISTENSION [None]
  - ABDOMINAL PAIN [None]
  - ACNE [None]
  - ALOPECIA [None]
  - AMENORRHOEA [None]
  - ATROPHIC GLOSSITIS [None]
  - AUTOIMMUNE DISORDER [None]
  - BASOPHIL COUNT INCREASED [None]
  - BLOOD CHOLESTEROL DECREASED [None]
  - BLOOD CREATININE DECREASED [None]
  - BLOOD PRESSURE ABNORMAL [None]
  - BLOOD TRIGLYCERIDES ABNORMAL [None]
  - BRAIN STEM SYNDROME [None]
  - DENTAL CARIES [None]
  - DIABETES MELLITUS [None]
  - DISCOMFORT [None]
  - DRUG INEFFECTIVE [None]
  - DRY SKIN [None]
  - DYSPEPSIA [None]
  - DYSPHAGIA [None]
  - ENDOCRINE DISORDER [None]
  - FEELING ABNORMAL [None]
  - GASTRITIS [None]
  - GIARDIASIS [None]
  - HAEMATOCRIT DECREASED [None]
  - HAEMOGLOBIN DECREASED [None]
  - HAIR DISORDER [None]
  - HEADACHE [None]
  - HEART RATE IRREGULAR [None]
  - LACRIMATION INCREASED [None]
  - LIP DRY [None]
  - LIPASE DECREASED [None]
  - LIVER FUNCTION TEST ABNORMAL [None]
  - LUNG DISORDER [None]
  - NAIL GROWTH ABNORMAL [None]
  - NASOPHARYNGITIS [None]
  - OBESITY [None]
  - OEDEMA [None]
  - ONYCHOCLASIS [None]
  - PANCREATIC DISORDER [None]
  - PLATELET DISORDER [None]
  - PRURITUS [None]
  - RED BLOOD CELL COUNT DECREASED [None]
  - RESPIRATION ABNORMAL [None]
  - SKIN DISCOLOURATION [None]
  - TOOTH MALFORMATION [None]
  - TUBERCULIN TEST POSITIVE [None]
  - VAGINAL DISORDER [None]
  - VISUAL IMPAIRMENT [None]
  - VULVOVAGINAL PAIN [None]
  - WEIGHT INCREASED [None]
  - WHITE BLOOD CELL COUNT DECREASED [None]
